FAERS Safety Report 10121367 (Version 3)
Quarter: 2014Q2

REPORT INFORMATION
  Report Type: Spontaneous
  Country: JP (occurrence: JP)
  Receive Date: 20140425
  Receipt Date: 20140609
  Transmission Date: 20141212
  Serious: Yes (Hospitalization)
  Sender: FDA-Public Use
  Company Number: JP-LUNDBECK-DKLU1099459

PATIENT
  Age: 29 Year
  Sex: Female
  Weight: 82 kg

DRUGS (10)
  1. MYSTAN [Suspect]
     Indication: CONVULSION
     Route: 048
  2. GLIBENCLAMIDE [Concomitant]
     Indication: HYPERGLYCAEMIA
  3. MAZINDOL [Concomitant]
     Indication: DECREASED APPETITE
  4. INSULIN [Concomitant]
     Indication: DIABETES MELLITUS
  5. SULPERAZON [Concomitant]
     Indication: PNEUMONIA
  6. VANCOMYCIN HYDROCHLORIDE [Concomitant]
     Indication: PRODUCT USED FOR UNKNOWN INDICATION
  7. CEFTAZIDIME HYDRATE [Concomitant]
     Indication: PRODUCT USED FOR UNKNOWN INDICATION
  8. ARBEKACIN SULFATE [Concomitant]
     Indication: PRODUCT USED FOR UNKNOWN INDICATION
  9. SODIUM VALPROATE [Concomitant]
     Indication: CONVULSION
  10. PHENYTOIN [Concomitant]
     Indication: CONVULSION

REACTIONS (1)
  - Sleep apnoea syndrome [Recovering/Resolving]
